FAERS Safety Report 8943809 (Version 1)
Quarter: 2012Q4

REPORT INFORMATION
  Report Type: Report from Study
  Country: CH (occurrence: US)
  Receive Date: 20121204
  Receipt Date: 20121204
  Transmission Date: 20130627
  Serious: Yes (Hospitalization)
  Sender: FDA-Public Use
  Company Number: US-BRISTOL-MYERS SQUIBB COMPANY-17158312

PATIENT
  Age: 62 Year
  Sex: Male

DRUGS (3)
  1. CETUXIMAB [Suspect]
     Indication: HEAD AND NECK CANCER
     Dosage: 04May10-25May10,09Jun10-15Jun10
     Route: 065
     Dates: start: 20100504
  2. CISPLATIN [Suspect]
     Indication: HEAD AND NECK CANCER
     Dosage: 04May10-28May10,09Jun10,Dose reduced,50mg/m2
     Route: 065
  3. BEVACIZUMAB [Suspect]
     Indication: HEAD AND NECK CANCER
     Dosage: 04May10-25May10,09Jun10-15Jun10
     Route: 065
     Dates: start: 20100504

REACTIONS (5)
  - Febrile neutropenia [Recovered/Resolved]
  - Mucosal inflammation [Recovering/Resolving]
  - Dehydration [Recovered/Resolved]
  - Blood sodium decreased [Recovered/Resolved]
  - Nausea [Recovered/Resolved]
